FAERS Safety Report 25264211 (Version 1)
Quarter: 2025Q2

REPORT INFORMATION
  Report Type: Report from Study
  Country: CA (occurrence: CA)
  Receive Date: 20250502
  Receipt Date: 20250502
  Transmission Date: 20250717
  Serious: Yes (Death, Other)
  Sender: TAKEDA
  Company Number: CA-TAKEDA-2025TUS042473

PATIENT
  Sex: Female

DRUGS (9)
  1. VEDOLIZUMAB [Suspect]
     Active Substance: VEDOLIZUMAB
     Indication: Colitis ulcerative
     Dates: start: 20191003, end: 20250228
  2. PREDNISONE [Concomitant]
     Active Substance: PREDNISONE
     Indication: Steroid dependence
  3. PREDNISONE [Concomitant]
     Active Substance: PREDNISONE
  4. VENTOLIN [Concomitant]
     Active Substance: ALBUTEROL SULFATE
  5. ASPIRIN [Concomitant]
     Active Substance: ASPIRIN
  6. Mavit [Concomitant]
  7. SOLIFENACIN [Concomitant]
     Active Substance: SOLIFENACIN
  8. SYNTHROID [Concomitant]
     Active Substance: LEVOTHYROXINE SODIUM
  9. OXYCODONE [Concomitant]
     Active Substance: OXYCODONE
     Dosage: 35 MILLIGRAM, QD

REACTIONS (1)
  - Death [Fatal]
